FAERS Safety Report 10969926 (Version 1)
Quarter: 2015Q1

REPORT INFORMATION
  Report Type: Spontaneous
  Country: US (occurrence: None)
  Receive Date: 20150330
  Receipt Date: 20150330
  Transmission Date: 20150721
  Serious: Yes (Hospitalization)
  Sender: FDA-Public Use
  Company Number: None

PATIENT
  Age: 34 Year
  Sex: Female
  Weight: 90.72 kg

DRUGS (1)
  1. BELVIQ [Suspect]
     Active Substance: LORCASERIN HYDROCHLORIDE
     Indication: WEIGHT LOSS DIET
     Dosage: 2 TWICE DAILY TAKEN BY MOUTH
     Route: 048
     Dates: start: 20150306, end: 20150317

REACTIONS (2)
  - Paranoia [None]
  - Abnormal behaviour [None]

NARRATIVE: CASE EVENT DATE: 20150317
